FAERS Safety Report 4699904-4 (Version None)
Quarter: 2005Q2

REPORT INFORMATION
  Report Type: 
  Country: None (occurrence: None)
  Receive Date: 20050624
  Receipt Date: 20050318
  Transmission Date: 20051028
  Serious: Yes (Death)
  Sender: FDA-Public Use
  Company Number: US-MERCK-0503USA03811

PATIENT
  Age: 35 Year
  Sex: Male
  Weight: 80 kg

DRUGS (16)
  1. VIOXX [Suspect]
     Indication: CARPAL TUNNEL SYNDROME
     Route: 048
     Dates: start: 20021029, end: 20030201
  2. VIOXX [Suspect]
     Route: 048
     Dates: start: 20021029, end: 20030201
  3. VIOXX [Suspect]
     Indication: ARM AMPUTATION
     Route: 048
     Dates: start: 20021029, end: 20030201
  4. VIOXX [Suspect]
     Route: 048
     Dates: start: 20021029, end: 20030201
  5. HYDROCODONE BITARTRATE [Concomitant]
     Route: 065
  6. SEROQUEL [Concomitant]
     Route: 065
  7. TOPAMAX [Concomitant]
     Route: 065
  8. [THERAPY UNSPECIFIED] [Concomitant]
     Route: 065
  9. LORAZEPAM [Concomitant]
     Route: 065
  10. TIZANIDINE HYDROCHLORIDE [Concomitant]
     Route: 065
  11. NEURONTIN [Concomitant]
     Route: 065
  12. ENDOCET [Concomitant]
     Route: 065
  13. SERZONE [Concomitant]
     Route: 065
  14. [THERAPY UNSPECIFIED] [Concomitant]
     Route: 065
  15. METHADONE HYDROCHLORIDE [Concomitant]
     Route: 065
  16. LEXAPRO [Concomitant]
     Route: 065

REACTIONS (8)
  - ACUTE MYOCARDIAL INFARCTION [None]
  - CHOLELITHIASIS [None]
  - CORONARY ARTERY ATHEROSCLEROSIS [None]
  - CORONARY ARTERY THROMBOSIS [None]
  - HEPATIC STEATOSIS [None]
  - HYPERAEMIA [None]
  - MYOCARDIAL ISCHAEMIA [None]
  - PULMONARY OEDEMA [None]
